FAERS Safety Report 9091586 (Version 1)
Quarter: 2013Q1

REPORT INFORMATION
  Report Type: Report from Study
  Country: US (occurrence: US)
  Receive Date: 20130131
  Receipt Date: 20130131
  Transmission Date: 20140127
  Serious: No
  Sender: FDA-Public Use
  Company Number: US-ABBOTT-12P-163-1004383-00

PATIENT
  Age: 49 Year
  Sex: Male

DRUGS (2)
  1. HUMIRA [Suspect]
     Indication: CROHN^S DISEASE
  2. IMURAN [Concomitant]
     Indication: CROHN^S DISEASE
     Dosage: 50MG DAILY

REACTIONS (4)
  - Skin exfoliation [Not Recovered/Not Resolved]
  - Incorrect dose administered [Unknown]
  - Device malfunction [Unknown]
  - Erythema [Unknown]
